FAERS Safety Report 4446886-6 (Version None)
Quarter: 2004Q3

REPORT INFORMATION
  Report Type: 
  Country: None (occurrence: None)
  Receive Date: 20040908
  Receipt Date: 20040825
  Transmission Date: 20050211
  Serious: No
  Sender: FDA-Public Use
  Company Number: 04H-066-0271661-00

PATIENT
  Age: 70 Year
  Sex: Male

DRUGS (1)
  1. DOBUTAMINE INJECTION (DOBUTAMINE HYDROCHLORIDE INJECTION) (DOBUTAMINE [Suspect]
     Dosage: 25 MCG/KG/MIN, INTRAVENOUS
     Route: 042

REACTIONS (2)
  - ARTERIOSPASM CORONARY [None]
  - MYOCARDIAL ISCHAEMIA [None]
